FAERS Safety Report 6883628-9 (Version None)
Quarter: 2010Q3

REPORT INFORMATION
  Report Type: 
  Country: None (occurrence: None)
  Receive Date: 20100729
  Receipt Date: 20100721
  Transmission Date: 20110219
  Serious: Yes (Other)
  Sender: FDA-Public Use
  Company Number: A0813405A

PATIENT
  Age: 82 Year
  Sex: Female

DRUGS (9)
  1. COREG CR [Suspect]
     Indication: HYPERTENSION
     Dosage: 60MG PER DAY
     Route: 048
     Dates: start: 20070601
  2. FISH OIL [Concomitant]
  3. LOVAZA [Concomitant]
  4. BONIVA [Concomitant]
  5. CALCIUM CITRATE [Concomitant]
  6. ACETAMINOPHEN [Concomitant]
  7. LUNESTA [Concomitant]
  8. VITAMIN B3 [Concomitant]
  9. ASPIRIN [Concomitant]

REACTIONS (8)
  - DRUG INEFFECTIVE [None]
  - EYE HAEMORRHAGE [None]
  - EYE IRRITATION [None]
  - EYE PRURITUS [None]
  - HYPERTENSION [None]
  - LABILE BLOOD PRESSURE [None]
  - OEDEMA PERIPHERAL [None]
  - VASODILATATION [None]
